FAERS Safety Report 12600731 (Version 2)
Quarter: 2016Q4

REPORT INFORMATION
  Report Type: Report from Study
  Country: CA (occurrence: CA)
  Receive Date: 20160727
  Receipt Date: 20161027
  Transmission Date: 20170207
  Serious: Yes (Other)
  Sender: FDA-Public Use
  Company Number: CA-GILEAD-2016-0224836

PATIENT
  Age: 63 Year
  Sex: Male

DRUGS (1)
  1. LEDIPASVIR/SOFOSBUVIR [Suspect]
     Active Substance: LEDIPASVIR\SOFOSBUVIR
     Indication: HEPATITIS C
     Dosage: UNK
     Route: 048
     Dates: start: 20150909

REACTIONS (5)
  - Hepatic cirrhosis [Unknown]
  - Platelet disorder [Unknown]
  - Treatment failure [Unknown]
  - Drug ineffective [Unknown]
  - Portal hypertension [Unknown]
